FAERS Safety Report 7103291-1 (Version None)
Quarter: 2010Q4

REPORT INFORMATION
  Report Type: 
  Country: None (occurrence: None)
  Receive Date: 20101115
  Receipt Date: 20101112
  Transmission Date: 20110411
  Serious: Yes (Disabling, Other)
  Sender: FDA-Public Use
  Company Number: FR-BRISTOL-MYERS SQUIBB COMPANY-15367394

PATIENT
  Age: 51 Year
  Sex: Female

DRUGS (12)
  1. REYATAZ [Suspect]
     Indication: HIV INFECTION
     Dosage: 2 CAPSULES.08MAR05-02AUG07,16OCT07-ONGOING
     Route: 048
     Dates: start: 20050308
  2. TRUVADA [Suspect]
     Indication: HIV INFECTION
     Dosage: 1DF=1TABLET(200MG/245MG).08MAR05-02AUG07,16OCT07-ONGOING
     Route: 048
     Dates: start: 20050308
  3. PEGASYS [Suspect]
     Indication: HEPATITIS C
     Dosage: 1 INJECTION/WEEKLY,15OCT2001-16JUL2002, RE INT 30OCT2009-17AUG2010
     Route: 058
     Dates: start: 20011015, end: 20100817
  4. COPEGUS [Suspect]
     Indication: HEPATITIS C
     Dosage: 2 TABLETS/DAY,15OCT2001-16JUL2002, RE INT 30OCT2009-17AUG2010
     Route: 048
     Dates: start: 20011015, end: 20100817
  5. REBETOL [Suspect]
     Indication: HEPATITIS C
     Dates: start: 20011015, end: 20101015
  6. INTERFERON [Suspect]
     Indication: HEPATITIS C
     Dates: start: 20011015, end: 20101015
  7. LEVOTHYROXINE SODIUM [Suspect]
     Indication: HYPOTHYROIDISM
  8. MS CONTIN [Concomitant]
  9. CHLOROQUINE PHOSPHATE [Concomitant]
  10. BACTRIM [Concomitant]
     Indication: PROPHYLAXIS
     Dosage: BACTRIM ADULTES
  11. SEROPLEX [Concomitant]
     Indication: DEPRESSION
  12. SERESTA [Concomitant]

REACTIONS (4)
  - HYPERTHYROIDISM [None]
  - OSTEONECROSIS [None]
  - VIROLOGIC FAILURE [None]
  - VITAMIN D DEFICIENCY [None]
